FAERS Safety Report 5465284-X (Version None)
Quarter: 2007Q3

REPORT INFORMATION
  Report Type: 
  Country: None (occurrence: None)
  Receive Date: 20070920
  Receipt Date: 20070920
  Transmission Date: 20080115
  Serious: No
  Sender: FDA-Public Use
  Company Number: None

PATIENT
  Age: 81 Year
  Sex: Female

DRUGS (2)
  1. PROVENTIL-HFA [Suspect]
     Indication: ASTHMA
     Dosage: INHALE 2 PUFFS FOUR TIMES DAILY AS NEEDED
     Route: 055
     Dates: start: 20070301
  2. PROVENTIL-HFA [Suspect]
     Indication: CHRONIC OBSTRUCTIVE PULMONARY DISEASE
     Dosage: INHALE 2 PUFFS FOUR TIMES DAILY AS NEEDED
     Route: 055
     Dates: start: 20070301

REACTIONS (1)
  - PHARMACEUTICAL PRODUCT COMPLAINT [None]
